FAERS Safety Report 8821068 (Version 1)
Quarter: 2012Q4

REPORT INFORMATION
  Report Type: 
  Country: US (occurrence: US)
  Receive Date: 20121002
  Receipt Date: 20121002
  Transmission Date: 20130627
  Serious: No
  Sender: FDA-Public Use
  Company Number: US-ASTRAZENECA-2012SE70619

PATIENT
  Sex: Male

DRUGS (1)
  1. SEROQUEL XR [Suspect]
     Route: 048

REACTIONS (7)
  - Social avoidant behaviour [Unknown]
  - Anger [Unknown]
  - Crying [Unknown]
  - Therapeutic response unexpected [Unknown]
  - Emotional disorder [Unknown]
  - Aggression [Unknown]
  - Tremor [Unknown]
